FAERS Safety Report 22399571 (Version 2)
Quarter: 2023Q2

REPORT INFORMATION
  Report Type: Report from Study
  Country: CA (occurrence: CA)
  Receive Date: 20230602
  Receipt Date: 20230605
  Transmission Date: 20230722
  Serious: Yes (Death)
  Sender: FDA-Public Use
  Company Number: CA-MYLANLABS-2023M1056382

PATIENT

DRUGS (1)
  1. XALATAN [Suspect]
     Active Substance: LATANOPROST
     Indication: Product used for unknown indication
     Dosage: 2.5 MILLILITER
     Route: 047

REACTIONS (1)
  - Death [Fatal]
